FAERS Safety Report 12495308 (Version 1)
Quarter: 2016Q2

REPORT INFORMATION
  Report Type: Spontaneous
  Country: US (occurrence: None)
  Receive Date: 20160623
  Receipt Date: 20160623
  Transmission Date: 20160815
  Serious: Yes (Life-Threatening, Hospitalization)
  Sender: FDA-Public Use
  Company Number: None

PATIENT
  Age: 70 Year
  Sex: Male
  Weight: 68.1 kg

DRUGS (1)
  1. IBRUTINIB [Suspect]
     Active Substance: IBRUTINIB
     Indication: WALDENSTROM^S MACROGLOBULINAEMIA
     Route: 048
     Dates: start: 20160111

REACTIONS (6)
  - Fall [None]
  - Ventricular extrasystoles [None]
  - Atrial fibrillation [None]
  - Extrasystoles [None]
  - Loss of consciousness [None]
  - Ventricular tachycardia [None]

NARRATIVE: CASE EVENT DATE: 20160126
